FAERS Safety Report 9618978 (Version 2)
Quarter: 2013Q4

REPORT INFORMATION
  Report Type: Spontaneous
  Country: JP (occurrence: JP)
  Receive Date: 20131014
  Receipt Date: 20131014
  Transmission Date: 20140711
  Serious: Yes (Hospitalization)
  Sender: FDA-Public Use
  Company Number: JP-SANOFI-AVENTIS-2013SA046905

PATIENT
  Age: 61 Year
  Sex: Male

DRUGS (9)
  1. LANTUS SOLOSTAR [Suspect]
     Indication: DIABETES MELLITUS
     Route: 065
  2. LANTUS SOLOSTAR [Suspect]
     Indication: SUICIDE ATTEMPT
     Route: 065
  3. LANTUS SOLOSTAR [Suspect]
     Indication: DIABETES MELLITUS
     Route: 058
     Dates: start: 20130430, end: 20130430
  4. LANTUS SOLOSTAR [Suspect]
     Indication: SUICIDE ATTEMPT
     Route: 058
     Dates: start: 20130430, end: 20130430
  5. SOLOSTAR [Concomitant]
     Indication: DEVICE THERAPY
     Route: 058
     Dates: start: 20130430, end: 20130430
  6. PAROXETINE [Concomitant]
     Indication: DEPRESSION
     Route: 048
  7. GLIMEPIRIDE [Concomitant]
     Dosage: 2 TABLETS
     Route: 048
  8. GLIMEPIRIDE [Concomitant]
     Dosage: 1 TABLET
     Route: 048
  9. VOGLIBOSE [Concomitant]
     Dosage: 3 TABLETS

REACTIONS (4)
  - Suicide attempt [Unknown]
  - Hypoglycaemia [Recovered/Resolved]
  - Overdose [Unknown]
  - Altered state of consciousness [Recovered/Resolved]
